FAERS Safety Report 13634569 (Version 1)
Quarter: 2017Q2

REPORT INFORMATION
  Report Type: Spontaneous
  Country: US (occurrence: US)
  Receive Date: 20170531
  Receipt Date: 20170531
  Transmission Date: 20170830
  Serious: No
  Sender: FDA-Public Use
  Company Number: US-ASTELLAS-1639000

PATIENT
  Sex: Male

DRUGS (9)
  1. TARCEVA [Suspect]
     Active Substance: ERLOTINIB HYDROCHLORIDE
     Indication: PRODUCT USED FOR UNKNOWN INDICATION
     Route: 048
     Dates: start: 20150904
  2. PULMICORT TURBUHALER [Concomitant]
     Active Substance: BUDESONIDE
  3. TERAZOSIN [Concomitant]
     Active Substance: TERAZOSIN\TERAZOSIN HYDROCHLORIDE
  4. ATORVASTATIN [Concomitant]
     Active Substance: ATORVASTATIN
  5. LISINOPRIL. [Concomitant]
     Active Substance: LISINOPRIL
  6. OXYCODONE [Concomitant]
     Active Substance: OXYCODONE
  7. NIFEDIPINE. [Concomitant]
     Active Substance: NIFEDIPINE
  8. COMBIVENT [Concomitant]
     Active Substance: ALBUTEROL SULFATE\IPRATROPIUM BROMIDE
  9. BISACODYL. [Concomitant]
     Active Substance: BISACODYL

REACTIONS (3)
  - Rash [Unknown]
  - Decreased appetite [Unknown]
  - Constipation [Unknown]
